FAERS Safety Report 8489502-9 (Version None)
Quarter: 2012Q3

REPORT INFORMATION
  Report Type: 
  Country: None (occurrence: None)
  Receive Date: 20120705
  Receipt Date: 20120622
  Transmission Date: 20120928
  Serious: Yes (Death, Hospitalization, Other)
  Sender: FDA-Public Use
  Company Number: JP-NAPPMUNDI-MAG-2012-0002200

PATIENT
  Sex: Female

DRUGS (8)
  1. LACTULOSE [Concomitant]
     Indication: HEPATIC CIRRHOSIS
     Dosage: 2 DF, DAILY
     Route: 048
     Dates: start: 20110705
  2. SPIRONOLACTONE [Concomitant]
     Indication: HYPERTENSION
     Dosage: 25 MG, DAILY
     Route: 048
     Dates: start: 20110802
  3. FORTEO [Concomitant]
     Indication: OSTEOPOROSIS
     Dosage: 20 MCG, DAILY
     Route: 042
     Dates: start: 20120410
  4. AMINOLEBAN                         /01982601/ [Concomitant]
     Indication: HEPATIC CIRRHOSIS
     Dosage: 1 DF, DAILY
     Route: 048
     Dates: start: 20120426
  5. BUPRENORPHINE [Suspect]
     Indication: ANALGESIC THERAPY
     Dosage: 5 MCG, Q1H
     Route: 062
     Dates: start: 20120606, end: 20120607
  6. RABEPRAZOLE SODIUM [Concomitant]
     Indication: GASTROOESOPHAGEAL REFLUX DISEASE
     Dosage: 25 MG, DAILY
     Route: 048
     Dates: start: 20100318
  7. LASIX [Concomitant]
     Indication: HYPERTENSION
     Dosage: 40 MG, DAILY
     Route: 048
     Dates: start: 20110516
  8. GOKUMISIN [Concomitant]
     Indication: HEPATIC CIRRHOSIS
     Dosage: 100 MG, DAILY
     Route: 048

REACTIONS (3)
  - DYSURIA [None]
  - RENAL FAILURE ACUTE [None]
  - COMA HEPATIC [None]
